FAERS Safety Report 8646588 (Version 6)
Quarter: 2013Q1

REPORT INFORMATION
  Report Type: Spontaneous
  Country: US (occurrence: US)
  Receive Date: 20120702
  Receipt Date: 20130212
  Transmission Date: 20140127
  Serious: Yes (Hospitalization, Disabling, Other)
  Sender: FDA-Public Use
  Company Number: US-009507513-1206USA05077

PATIENT
  Sex: Female
  Weight: 51.7 kg

DRUGS (5)
  1. FOSAMAX [Suspect]
     Indication: OSTEOPOROSIS
     Dosage: 70 MG, QW
     Route: 048
  2. FOSAMAX [Suspect]
     Indication: OSTEOPENIA
     Dosage: 70 UNK, UNK
     Route: 048
     Dates: start: 19960114, end: 20080601
  3. VITAMINS (UNSPECIFIED) [Concomitant]
     Dosage: UNK, QD
     Dates: start: 1980
  4. CALCIUM (UNSPECIFIED) (+) VITAMIN D (UNSPECIFIED) [Concomitant]
     Dosage: 600 MG, BID
     Dates: start: 1980
  5. BONIVA [Concomitant]
     Indication: OSTEOPOROSIS

REACTIONS (49)
  - Femur fracture [Recovered/Resolved]
  - Intramedullary rod insertion [Recovered/Resolved]
  - Appendicectomy [Unknown]
  - Open reduction of fracture [Unknown]
  - Transfusion [Unknown]
  - Surgery [Unknown]
  - Thyroidectomy [Unknown]
  - Transfusion reaction [Unknown]
  - Osteoporosis [Unknown]
  - Low turnover osteopathy [Unknown]
  - Fall [Unknown]
  - Bone disorder [Unknown]
  - Femur fracture [Recovered/Resolved]
  - Fracture delayed union [Recovered/Resolved]
  - Temporomandibular joint syndrome [Unknown]
  - Arthritis [Unknown]
  - Thyroid disorder [Unknown]
  - Cardiac murmur [Unknown]
  - Gingival pain [Unknown]
  - Device failure [Unknown]
  - Gingival inflammation [Recovering/Resolving]
  - Tooth disorder [Unknown]
  - Femoroacetabular impingement [Unknown]
  - Post laminectomy syndrome [Unknown]
  - Hypothyroidism [Unknown]
  - Nervousness [Unknown]
  - Radiculitis [Unknown]
  - Palpitations [Unknown]
  - Ventricular extrasystoles [Unknown]
  - Impaired healing [Unknown]
  - Intervertebral disc degeneration [Unknown]
  - Cervical spinal stenosis [Unknown]
  - Lipoma [Unknown]
  - Bursitis [Unknown]
  - Balance disorder [Unknown]
  - Vision blurred [Unknown]
  - Sensation of pressure [Unknown]
  - Cataract [Unknown]
  - Radiculitis brachial [Unknown]
  - Facial asymmetry [Unknown]
  - Osteoarthritis [Unknown]
  - Gait disturbance [Unknown]
  - Muscle strain [Recovering/Resolving]
  - Tendon disorder [Unknown]
  - Herpes zoster [Recovering/Resolving]
  - Drug ineffective [Unknown]
  - Urticaria [Unknown]
  - Constipation [Unknown]
  - Neck pain [Not Recovered/Not Resolved]
